FAERS Safety Report 25154487 (Version 1)
Quarter: 2025Q2

REPORT INFORMATION
  Report Type: Spontaneous
  Country: ES (occurrence: ES)
  Receive Date: 20250403
  Receipt Date: 20250403
  Transmission Date: 20250717
  Serious: Yes (Hospitalization, Other)
  Sender: AUROBINDO
  Company Number: ES-AEMPS-1649881

PATIENT
  Age: 60 Year
  Sex: Male

DRUGS (1)
  1. IBUPROFEN SODIUM [Suspect]
     Active Substance: IBUPROFEN SODIUM
     Indication: Toothache
     Dosage: 2800 MILLIGRAM, ONCE A DAY ( 400 MG X 2 EVERY 6-8 HOURS)
     Route: 048
     Dates: start: 20250311, end: 20250313

REACTIONS (3)
  - Basal ganglia haemorrhage [Recovering/Resolving]
  - Hypertensive emergency [Recovered/Resolved]
  - Hypertension [Recovering/Resolving]

NARRATIVE: CASE EVENT DATE: 20250313
